FAERS Safety Report 9835155 (Version 2)
Quarter: 2014Q1

REPORT INFORMATION
  Report Type: Spontaneous
  Country: US (occurrence: US)
  Receive Date: 20140122
  Receipt Date: 20140122
  Transmission Date: 20141002
  Serious: No
  Sender: FDA-Public Use
  Company Number: US-BRISTOL-MYERS SQUIBB COMPANY-19833144

PATIENT
  Age: 55 Year
  Sex: Male
  Weight: 113.38 kg

DRUGS (9)
  1. ELIQUIS [Suspect]
     Dates: start: 20130608
  2. DIGOXIN [Concomitant]
  3. DILTIAZEM CD [Concomitant]
  4. FUROSEMIDE [Concomitant]
  5. LISINOPRIL [Concomitant]
  6. LOVASTATIN [Concomitant]
  7. METOPROLOL [Concomitant]
  8. POTASSIUM [Concomitant]
  9. RANITIDINE [Concomitant]

REACTIONS (1)
  - Drug dose omission [Unknown]
